FAERS Safety Report 7250373-X (Version None)
Quarter: 2011Q1

REPORT INFORMATION
  Report Type: 
  Country: None (occurrence: None)
  Receive Date: 20110121
  Receipt Date: 20110121
  Transmission Date: 20110831
  Serious: No
  Sender: FDA-Public Use
  Company Number: None

PATIENT
  Age: 55 Year
  Sex: Male
  Weight: 99.79 kg

DRUGS (1)
  1. ACYCLOVIR [Suspect]
     Indication: MENINGITIS HERPES
     Dosage: 1000 MG TID IV
     Route: 042
     Dates: start: 20101223, end: 20101225

REACTIONS (1)
  - RENAL FAILURE ACUTE [None]
